FAERS Safety Report 8654693 (Version 6)
Quarter: 2019Q3

REPORT INFORMATION
  Report Type: Spontaneous
  Country: US (occurrence: US)
  Receive Date: 20120709
  Receipt Date: 20190903
  Transmission Date: 20191005
  Serious: Yes (Death, Other)
  Sender: FDA-Public Use
  Company Number: US-ROCHE-1084653

PATIENT
  Age: 49 Year
  Sex: Female

DRUGS (9)
  1. OXALIPLATIN. [Concomitant]
     Active Substance: OXALIPLATIN
     Indication: COLORECTAL CANCER METASTATIC
  2. XELODA [Suspect]
     Active Substance: CAPECITABINE
     Indication: COLON CANCER
     Route: 065
  3. XELODA [Suspect]
     Active Substance: CAPECITABINE
     Indication: METASTASES TO OVARY
  4. FOLINIC ACID [Concomitant]
     Active Substance: LEUCOVORIN
     Indication: COLORECTAL CANCER METASTATIC
  5. AVASTIN [Suspect]
     Active Substance: BEVACIZUMAB
     Indication: COLON CANCER
     Route: 065
     Dates: start: 2010
  6. AVASTIN [Suspect]
     Active Substance: BEVACIZUMAB
     Indication: COLORECTAL CANCER METASTATIC
     Dosage: INDICATION REPORTED AS STAGE 4 MCRC
     Route: 065
     Dates: start: 2007, end: 200904
  7. AVASTIN [Suspect]
     Active Substance: BEVACIZUMAB
     Indication: METASTASES TO OVARY
  8. 5-FLUOROURACIL [FLUOROURACIL] [Concomitant]
     Active Substance: FLUOROURACIL
     Indication: COLORECTAL CANCER METASTATIC
  9. IRINOTECAN HYDROCHLORIDE. [Concomitant]
     Active Substance: IRINOTECAN HYDROCHLORIDE
     Indication: COLORECTAL CANCER METASTATIC

REACTIONS (7)
  - Lung neoplasm [Unknown]
  - Metastases to spine [Unknown]
  - Death [Fatal]
  - Product complaint [Unknown]
  - Metastases to liver [Unknown]
  - Metastases to bone [Unknown]
  - Neuropathy peripheral [Unknown]

NARRATIVE: CASE EVENT DATE: 201008
